FAERS Safety Report 6149969-8 (Version None)
Quarter: 2009Q2

REPORT INFORMATION
  Report Type: 
  Country: None (occurrence: None)
  Receive Date: 20090409
  Receipt Date: 20090402
  Transmission Date: 20091009
  Serious: Yes (Death, Hospitalization)
  Sender: FDA-Public Use
  Company Number: A0777560A

PATIENT
  Age: 8 Year
  Sex: Male

DRUGS (9)
  1. ADVAIR HFA [Suspect]
     Indication: ASTHMA
     Dosage: 1PUFF TWICE PER DAY
     Route: 055
  2. ALBUTEROL [Concomitant]
     Indication: ASTHMA
     Route: 055
  3. DECADRON [Concomitant]
  4. PEPCID [Concomitant]
  5. FLONASE [Concomitant]
  6. PREDNISONE TAB [Concomitant]
  7. LORATADINE [Concomitant]
  8. ELIDEL [Concomitant]
  9. EUCERIN [Concomitant]

REACTIONS (4)
  - ACUTE RESPIRATORY FAILURE [None]
  - ASTHMA [None]
  - PNEUMONIA [None]
  - STATUS ASTHMATICUS [None]
